FAERS Safety Report 14585847 (Version 1)
Quarter: 2018Q1

REPORT INFORMATION
  Report Type: Spontaneous
  Country: US (occurrence: US)
  Receive Date: 20180301
  Receipt Date: 20180301
  Transmission Date: 20180509
  Serious: No
  Sender: FDA-Public Use
  Company Number: US-TEVA-2018-US-860592

PATIENT
  Sex: Male

DRUGS (1)
  1. TESTOSTERONE. [Suspect]
     Active Substance: TESTOSTERONE
     Indication: HORMONE REPLACEMENT THERAPY
     Dosage: DOSE STRENGTH:  30/1.5
     Route: 065

REACTIONS (7)
  - Feeling abnormal [Unknown]
  - Asthenia [Unknown]
  - Fatigue [Unknown]
  - Pallor [Unknown]
  - Drug dose omission [Unknown]
  - Peripheral coldness [Unknown]
  - Dry mouth [Unknown]

NARRATIVE: CASE EVENT DATE: 20180130
